FAERS Safety Report 8312509-9 (Version None)
Quarter: 2012Q2

REPORT INFORMATION
  Report Type: 
  Country: None (occurrence: None)
  Receive Date: 20120425
  Receipt Date: 20120420
  Transmission Date: 20120825
  Serious: Yes (Hospitalization)
  Sender: FDA-Public Use
  Company Number: FR-MERCK-1204FRA00107

PATIENT
  Age: 76 Year
  Sex: Male

DRUGS (7)
  1. DILTIAZEM HCL [Suspect]
     Indication: HYPERTENSION
     Route: 048
     Dates: end: 20111101
  2. IRBESARTAN + HYDROCHLOROTHIAZIDE [Suspect]
     Indication: ESSENTIAL HYPERTENSION
     Route: 048
     Dates: end: 20120101
  3. FLUINDIONE [Suspect]
     Indication: ARRHYTHMIA
     Route: 048
     Dates: start: 20110101, end: 20120201
  4. LERCANIDIPINE [Suspect]
     Indication: ESSENTIAL HYPERTENSION
     Route: 048
     Dates: end: 20111101
  5. COZAAR [Suspect]
     Route: 048
     Dates: end: 20120101
  6. FLECAINIDE ACETATE [Suspect]
     Indication: ESSENTIAL HYPERTENSION
     Route: 048
     Dates: end: 20111101
  7. DIGOXIN [Suspect]
     Route: 048
     Dates: end: 20120101

REACTIONS (1)
  - ECZEMA [None]
